FAERS Safety Report 9266548 (Version 1)
Quarter: 2013Q2

REPORT INFORMATION
  Report Type: Spontaneous
  Country: US (occurrence: US)
  Receive Date: 20130502
  Receipt Date: 20130502
  Transmission Date: 20140414
  Serious: Yes (Other)
  Sender: FDA-Public Use
  Company Number: US-BAYER-2013-051393

PATIENT
  Sex: Female

DRUGS (1)
  1. MIRENA [Suspect]
     Dosage: 20 MCG/24HR, CONT
     Route: 015
     Dates: end: 20121116

REACTIONS (6)
  - Uterine perforation [None]
  - Uterine pain [None]
  - Abdominal pain [None]
  - Injury [None]
  - Pain [None]
  - Anxiety [None]
